FAERS Safety Report 8042317-8 (Version None)
Quarter: 2012Q1

REPORT INFORMATION
  Report Type: 
  Country: None (occurrence: None)
  Receive Date: 20120112
  Receipt Date: 20120111
  Transmission Date: 20120608
  Serious: Yes (Other)
  Sender: FDA-Public Use
  Company Number: IL-BAYER-2011-109707

PATIENT
  Age: 37 Year
  Sex: Female

DRUGS (3)
  1. MIRENA [Suspect]
     Indication: CONTRACEPTION
     Dosage: UNK
     Dates: start: 20100323
  2. CYMBALTA [Concomitant]
  3. DEPALEPT [Concomitant]

REACTIONS (2)
  - FOCAL NODULAR HYPERPLASIA [None]
  - HEPATIC ENZYME INCREASED [None]
